FAERS Safety Report 23875612 (Version 1)
Quarter: 2024Q2

REPORT INFORMATION
  Report Type: Spontaneous
  Country: JP (occurrence: JP)
  Receive Date: 20240520
  Receipt Date: 20240520
  Transmission Date: 20240715
  Serious: Yes (Life-Threatening, Other)
  Sender: FDA-Public Use
  Company Number: JP-OTSUKA-2024_014106

PATIENT
  Age: 21 Year
  Sex: Female
  Weight: 50 kg

DRUGS (4)
  1. ABILIFY MAINTENA [Suspect]
     Active Substance: ARIPIPRAZOLE
     Indication: Schizophrenia
     Dosage: 400MG X 1 TIME
     Route: 030
     Dates: start: 20231213, end: 20231213
  2. REXULTI [Suspect]
     Active Substance: BREXPIPRAZOLE
     Indication: Schizophrenia
     Dosage: UNK
     Route: 065
     Dates: start: 20240109, end: 20240114
  3. BLONANSERIN [Suspect]
     Active Substance: BLONANSERIN
     Indication: Schizophrenia
     Dosage: UNK
     Route: 062
     Dates: start: 20240114
  4. DAYVIGO [Concomitant]
     Active Substance: LEMBOREXANT
     Indication: Product used for unknown indication
     Dosage: UNK
     Route: 048

REACTIONS (4)
  - Akathisia [Not Recovered/Not Resolved]
  - Delirium [Unknown]
  - Fall [Unknown]
  - Restlessness [Unknown]

NARRATIVE: CASE EVENT DATE: 20240109
